FAERS Safety Report 5218735-X (Version None)
Quarter: 2007Q1

REPORT INFORMATION
  Report Type: 
  Country: None (occurrence: None)
  Receive Date: 20070123
  Receipt Date: 20070110
  Transmission Date: 20070707
  Serious: Yes (Hospitalization)
  Sender: FDA-Public Use
  Company Number: 2006BI015995

PATIENT
  Age: 39 Year
  Sex: Female
  Weight: 72.5755 kg

DRUGS (3)
  1. AVONEX [Suspect]
     Indication: MULTIPLE SCLEROSIS
     Dosage: 30 UG;QW;IM
     Route: 030
     Dates: start: 20060825
  2. SYNTHROID [Concomitant]
  3. CHANTIX [Concomitant]

REACTIONS (3)
  - AUTOIMMUNE THYROIDITIS [None]
  - BIOPSY THYROID GLAND ABNORMAL [None]
  - MUSCULOSKELETAL PAIN [None]
